FAERS Safety Report 21212484 (Version 1)
Quarter: 2022Q3

REPORT INFORMATION
  Report Type: Spontaneous
  Country: US (occurrence: None)
  Receive Date: 20220812
  Receipt Date: 20220812
  Transmission Date: 20221026
  Serious: Yes (Hospitalization)
  Sender: FDA-Public Use
  Company Number: None

PATIENT
  Age: 56 Year
  Sex: Male

DRUGS (1)
  1. DULAGLUTIDE [Suspect]
     Active Substance: DULAGLUTIDE
     Dates: start: 20220328, end: 20220416

REACTIONS (2)
  - Pancreatitis [None]
  - Cholecystectomy [None]

NARRATIVE: CASE EVENT DATE: 20220404
